FAERS Safety Report 19668998 (Version 3)
Quarter: 2021Q3

REPORT INFORMATION
  Report Type: Spontaneous
  Country: US (occurrence: US)
  Receive Date: 20210806
  Receipt Date: 20210908
  Transmission Date: 20211014
  Serious: Yes (Hospitalization)
  Sender: FDA-Public Use
  Company Number: US-SA-2021SA259045

PATIENT
  Age: 56 Year
  Sex: Male

DRUGS (1)
  1. AUBAGIO [Suspect]
     Active Substance: TERIFLUNOMIDE
     Indication: MULTIPLE SCLEROSIS
     Dosage: 14 MG, QD
     Route: 048
     Dates: start: 20150914

REACTIONS (5)
  - Oral infection [Recovered/Resolved]
  - Product dose omission issue [Unknown]
  - Balance disorder [Recovered/Resolved]
  - Hospitalisation [Recovered/Resolved]
  - Mobility decreased [Recovered/Resolved]
